FAERS Safety Report 5894267-0 (Version None)
Quarter: 2008Q3

REPORT INFORMATION
  Report Type: 
  Country: None (occurrence: None)
  Receive Date: 20080923
  Receipt Date: 20080324
  Transmission Date: 20090109
  Serious: No
  Sender: FDA-Public Use
  Company Number: US-ASTRAZENECA-2008UW05955

PATIENT
  Age: 55 Year
  Sex: Male

DRUGS (3)
  1. SEROQUEL [Suspect]
     Route: 048
     Dates: start: 20080101
  2. SEROQUEL [Interacting]
     Route: 048
     Dates: start: 20070101, end: 20080101
  3. PROZAC [Interacting]
     Dates: start: 20070101

REACTIONS (3)
  - DRUG INTERACTION [None]
  - LOSS OF LIBIDO [None]
  - SEXUAL DYSFUNCTION [None]
